FAERS Safety Report 9249038 (Version 1)
Quarter: 2013Q1

REPORT INFORMATION
  Report Type: Spontaneous
  Country: US (occurrence: None)
  Receive Date: 20130305
  Receipt Date: 20130305
  Transmission Date: 20140127
  Serious: Yes (Other)
  Sender: FDA-Public Use
  Company Number: 163-21880-12091162

PATIENT
  Age: 59 Year
  Sex: Female
  Weight: 51.71 kg

DRUGS (1)
  1. REVLIMID [Suspect]
     Indication: PLASMA CELL MYELOMA
     Route: 048
     Dates: start: 200811, end: 2008

REACTIONS (3)
  - Pulmonary embolism [None]
  - Nasopharyngitis [None]
  - White blood cell count decreased [None]
